FAERS Safety Report 5028800-8 (Version None)
Quarter: 2006Q2

REPORT INFORMATION
  Report Type: 
  Country: None (occurrence: None)
  Receive Date: 20060501
  Receipt Date: 20060307
  Transmission Date: 20061013
  Serious: No
  Sender: FDA-Public Use
  Company Number: 200612570US

PATIENT
  Sex: Female

DRUGS (1)
  1. KETEK [Suspect]
     Dosage: PO
     Route: 048
     Dates: start: 20060307

REACTIONS (1)
  - DRUG EXPOSURE DURING PREGNANCY [None]
